FAERS Safety Report 20920774 (Version 2)
Quarter: 2023Q1

REPORT INFORMATION
  Report Type: Spontaneous
  Country: US (occurrence: US)
  Receive Date: 20220606
  Receipt Date: 20230214
  Transmission Date: 20230418
  Serious: No
  Sender: FDA-Public Use
  Company Number: US-LUPIN PHARMACEUTICALS INC.-2022-07928

PATIENT

DRUGS (3)
  1. ALBUTEROL SULFATE [Suspect]
     Active Substance: ALBUTEROL SULFATE
     Indication: Wheezing
     Dosage: UNK UNK, PRN  (INHALER 1)(2 PUFFS EVERY 6 HOURS AS NEED FOR WHEEZING)
     Dates: start: 20220303
  2. ALBUTEROL SULFATE [Suspect]
     Active Substance: ALBUTEROL SULFATE
     Indication: Chronic obstructive pulmonary disease
     Dosage: UNK UNK, PRN  (INHALER 2)(2 PUFFS EVERY 6 HOURS AS NEED FOR WHEEZING)
     Dates: start: 20220403
  3. ALBUTEROL SULFATE [Suspect]
     Active Substance: ALBUTEROL SULFATE
     Dosage: UNK UNK, PRN  (INHALER 3)(2 PUFFS EVERY 6 HOURS AS NEED FOR WHEEZING)
     Dates: start: 20220503

REACTIONS (2)
  - Wrong technique in product usage process [Unknown]
  - No adverse event [Unknown]
